FAERS Safety Report 9293427 (Version 1)
Quarter: 2013Q2

REPORT INFORMATION
  Report Type: Spontaneous
  Country: US (occurrence: US)
  Receive Date: 20130516
  Receipt Date: 20130516
  Transmission Date: 20140414
  Serious: Yes (Other)
  Sender: FDA-Public Use
  Company Number: PHEH2013US010720

PATIENT
  Sex: Male

DRUGS (2)
  1. VALSARTAN + HCT [Suspect]
  2. PYRIMIDINE ANALOGUES [Concomitant]

REACTIONS (2)
  - Diabetes mellitus [Unknown]
  - Cough [Unknown]
